FAERS Safety Report 7570729-5 (Version None)
Quarter: 2011Q2

REPORT INFORMATION
  Report Type: 
  Country: None (occurrence: None)
  Receive Date: 20110622
  Receipt Date: 20110622
  Transmission Date: 20111010
  Serious: Yes (Death, Life-Threatening, Hospitalization)
  Sender: FDA-Public Use
  Company Number: None

PATIENT
  Sex: Male
  Weight: 82.7 kg

DRUGS (1)
  1. GEODON [Suspect]
     Indication: AGITATION
     Dates: start: 20110328

REACTIONS (2)
  - PNEUMONIA [None]
  - ASPIRATION [None]
